FAERS Safety Report 17500739 (Version 1)
Quarter: 2020Q1

REPORT INFORMATION
  Report Type: Spontaneous
  Country: US (occurrence: US)
  Receive Date: 20200305
  Receipt Date: 20200305
  Transmission Date: 20200409
  Serious: No
  Sender: FDA-Public Use
  Company Number: US-BAYER-2020-039224

PATIENT
  Sex: Female

DRUGS (3)
  1. IBRANCE [Concomitant]
     Active Substance: PALBOCICLIB
     Indication: BREAST CANCER
     Dosage: UNK
  2. CLARITIN [Suspect]
     Active Substance: LORATADINE
     Indication: ALLERGIC SINUSITIS
  3. CLARITIN [Suspect]
     Active Substance: LORATADINE
     Indication: COUGH
     Dosage: UNK

REACTIONS (1)
  - Drug ineffective [Unknown]
